FAERS Safety Report 8540348-2 (Version None)
Quarter: 2012Q3

REPORT INFORMATION
  Report Type: 
  Country: None (occurrence: None)
  Receive Date: 20120726
  Receipt Date: 20120717
  Transmission Date: 20120928
  Serious: Yes (Hospitalization)
  Sender: FDA-Public Use
  Company Number: FR-ASTRAZENECA-2012SE50356

PATIENT
  Age: 30498 Day
  Sex: Female

DRUGS (8)
  1. PULMICORT [Suspect]
     Indication: ASTHMA
     Route: 055
     Dates: start: 20120401
  2. PERINDOPRIL ERBUMINE [Suspect]
     Indication: HYPERTENSION
     Route: 048
  3. ATORVASTATIN [Suspect]
     Indication: HYPERCHOLESTEROLAEMIA
     Route: 048
  4. ATHYMIL [Suspect]
     Indication: DEPRESSION
     Route: 048
  5. ARICEPT [Suspect]
     Indication: DEMENTIA ALZHEIMER'S TYPE
     Route: 048
     Dates: start: 20100201
  6. ZOLPIDEM [Suspect]
     Indication: DEPRESSION
     Route: 048
  7. ALPRAZOLAM [Suspect]
     Indication: DEPRESSION
     Route: 048
  8. FLUTICASONE PROPIONATE/SALMETEROL [Concomitant]
     Indication: ASTHMA
     Dates: start: 20120401, end: 20120101

REACTIONS (3)
  - ELECTROCARDIOGRAM QT PROLONGED [None]
  - FALL [None]
  - MALAISE [None]
